FAERS Safety Report 22677387 (Version 7)
Quarter: 2025Q3

REPORT INFORMATION
  Report Type: Spontaneous
  Country: EU (occurrence: EU)
  Receive Date: 20230706
  Receipt Date: 20250804
  Transmission Date: 20251021
  Serious: Yes (Death, Hospitalization, Other)
  Sender: ALEXION PHARMACEUTICALS
  Company Number: 2023A140931

PATIENT
  Age: 17 Year
  Sex: Female
  Weight: 56 kg

DRUGS (59)
  1. OMEPRAZOLE [Suspect]
     Active Substance: OMEPRAZOLE
     Indication: Product used for unknown indication
  2. PROPOFOL [Suspect]
     Active Substance: PROPOFOL
     Indication: Product used for unknown indication
     Route: 065
  3. ROPIVACAINE [Suspect]
     Active Substance: ROPIVACAINE
     Indication: Analgesic therapy
     Dosage: 24 MG, INFUSION
     Route: 065
  4. MIDAZOLAM [Suspect]
     Active Substance: MIDAZOLAM
     Indication: Palliative sedation
     Route: 065
  5. MIDAZOLAM [Suspect]
     Active Substance: MIDAZOLAM
  6. MIDAZOLAM [Suspect]
     Active Substance: MIDAZOLAM
  7. PREGABALIN [Suspect]
     Active Substance: PREGABALIN
     Indication: Palliative care
     Route: 065
  8. PREGABALIN [Suspect]
     Active Substance: PREGABALIN
     Indication: Pain
     Route: 065
  9. PREGABALIN [Suspect]
     Active Substance: PREGABALIN
     Indication: Ewing^s sarcoma
     Route: 065
  10. PREGABALIN [Suspect]
     Active Substance: PREGABALIN
  11. COTRIMOXAZOLE [Suspect]
     Active Substance: SULFAMETHOXAZOLE\TRIMETHOPRIM
     Indication: Ewing^s sarcoma
     Route: 065
  12. COTRIMOXAZOLE [Suspect]
     Active Substance: SULFAMETHOXAZOLE\TRIMETHOPRIM
     Indication: Product used for unknown indication
  13. COTRIMOXAZOLE [Suspect]
     Active Substance: SULFAMETHOXAZOLE\TRIMETHOPRIM
     Indication: Palliative care
     Route: 065
  14. COTRIMOXAZOLE [Suspect]
     Active Substance: SULFAMETHOXAZOLE\TRIMETHOPRIM
     Indication: Ewing^s sarcoma
     Route: 065
  15. COTRIMOXAZOLE [Suspect]
     Active Substance: SULFAMETHOXAZOLE\TRIMETHOPRIM
     Indication: Pain
  16. COTRIMOXAZOLE [Suspect]
     Active Substance: SULFAMETHOXAZOLE\TRIMETHOPRIM
     Indication: Ewing^s sarcoma
  17. COTRIMOXAZOLE [Suspect]
     Active Substance: SULFAMETHOXAZOLE\TRIMETHOPRIM
     Indication: Palliative care
  18. DEXAMETHASONE PHOSPHATE [Suspect]
     Active Substance: DEXAMETHASONE PHOSPHATE
     Indication: Ewing^s sarcoma
     Route: 065
  19. DEXAMETHASONE PHOSPHATE [Suspect]
     Active Substance: DEXAMETHASONE PHOSPHATE
     Indication: Palliative care
  20. DULOXETINE [Suspect]
     Active Substance: DULOXETINE
     Indication: Pain
     Route: 065
  21. DULOXETINE [Suspect]
     Active Substance: DULOXETINE
     Indication: Ewing^s sarcoma
     Route: 065
  22. DULOXETINE [Suspect]
     Active Substance: DULOXETINE
     Indication: Palliative sedation
  23. DULOXETINE [Suspect]
     Active Substance: DULOXETINE
     Indication: Palliative care
  24. ONDANSETRON [Suspect]
     Active Substance: ONDANSETRON
     Indication: Palliative care
     Route: 065
  25. ONDANSETRON [Suspect]
     Active Substance: ONDANSETRON
     Indication: Pain
     Route: 065
  26. ONDANSETRON [Suspect]
     Active Substance: ONDANSETRON
     Indication: Ewing^s sarcoma
  27. FENTANYL [Suspect]
     Active Substance: FENTANYL
     Route: 065
  28. MORPHINE [Suspect]
     Active Substance: MORPHINE
     Indication: Palliative sedation
     Route: 065
  29. MORPHINE [Suspect]
     Active Substance: MORPHINE
  30. MORPHINE [Suspect]
     Active Substance: MORPHINE
  31. ACETAMINOPHEN [Suspect]
     Active Substance: ACETAMINOPHEN
     Route: 065
  32. CLONIDINE [Suspect]
     Active Substance: CLONIDINE
     Indication: Product used for unknown indication
     Route: 065
  33. CLONIDINE [Suspect]
     Active Substance: CLONIDINE
     Indication: Palliative sedation
     Route: 065
  34. CLONIDINE [Suspect]
     Active Substance: CLONIDINE
     Indication: Psychotic disorder
     Dosage: 12.5 MG, 1 DOSE 12 HOURS
  35. CLONIDINE [Suspect]
     Active Substance: CLONIDINE
     Route: 065
  36. CLOZAPINE [Suspect]
     Active Substance: CLOZAPINE
     Indication: Psychotic disorder
  37. CLOZAPINE [Suspect]
     Active Substance: CLOZAPINE
     Dosage: 12.5 MG, 1 DOSE 12 HOURS (12.5 MG X 2 /DIE Q12H)
  38. CLOZAPINE [Suspect]
     Active Substance: CLOZAPINE
     Dosage: 25 MG (25 MG 12.5 MG X 2 /DIE Q12H)
  39. CLOZAPINE [Suspect]
     Active Substance: CLOZAPINE
  40. CLOZAPINE [Suspect]
     Active Substance: CLOZAPINE
     Route: 065
  41. CLOZAPINE [Suspect]
     Active Substance: CLOZAPINE
     Dosage: 12.5 MG, 1 DOSE 12 HOURS (12.5 MG X 2 /DIE Q12H)
     Dates: start: 20220903, end: 20220913
  42. CLOZAPINE [Suspect]
     Active Substance: CLOZAPINE
     Route: 065
     Dates: start: 20220903, end: 20220913
  43. CLOZAPINE [Suspect]
     Active Substance: CLOZAPINE
     Route: 065
  44. CLOZAPINE [Suspect]
     Active Substance: CLOZAPINE
     Route: 065
  45. CLOZAPINE [Suspect]
     Active Substance: CLOZAPINE
     Route: 065
  46. DECADRON (DEXAMETHASONE SODIUM PHOSPHATE) [Suspect]
     Active Substance: DEXAMETHASONE SODIUM PHOSPHATE
     Indication: Ewing^s sarcoma
     Route: 065
  47. DECADRON (DEXAMETHASONE SODIUM PHOSPHATE) [Suspect]
     Active Substance: DEXAMETHASONE SODIUM PHOSPHATE
     Indication: Palliative care
  48. DECADRON (DEXAMETHASONE SODIUM PHOSPHATE) [Suspect]
     Active Substance: DEXAMETHASONE SODIUM PHOSPHATE
     Indication: Pain
  49. ACETAMINOPHEN [Suspect]
     Active Substance: ACETAMINOPHEN
     Indication: Pain
  50. ACETAMINOPHEN [Suspect]
     Active Substance: ACETAMINOPHEN
     Indication: Palliative care
     Route: 065
  51. ACETAMINOPHEN [Suspect]
     Active Substance: ACETAMINOPHEN
     Indication: Ewing^s sarcoma
  52. MORPHINE HYDROCHLORIDE [Suspect]
     Active Substance: MORPHINE HYDROCHLORIDE
     Indication: Palliative sedation
  53. MORPHINE HYDROCHLORIDE [Suspect]
     Active Substance: MORPHINE HYDROCHLORIDE
  54. MORPHINE HYDROCHLORIDE [Suspect]
     Active Substance: MORPHINE HYDROCHLORIDE
  55. ANAPEINE [Suspect]
     Active Substance: ROPIVACAINE HYDROCHLORIDE
     Indication: Analgesic therapy
     Route: 065
  56. DULOXETINE HYDROCHLORIDE [Suspect]
     Active Substance: DULOXETINE HYDROCHLORIDE
     Indication: Pain
     Route: 065
  57. DULOXETINE HYDROCHLORIDE [Suspect]
     Active Substance: DULOXETINE HYDROCHLORIDE
     Indication: Ewing^s sarcoma
  58. DULOXETINE HYDROCHLORIDE [Suspect]
     Active Substance: DULOXETINE HYDROCHLORIDE
     Indication: Palliative sedation
  59. DULOXETINE HYDROCHLORIDE [Suspect]
     Active Substance: DULOXETINE HYDROCHLORIDE
     Indication: Palliative care

REACTIONS (19)
  - Drug ineffective [Fatal]
  - Off label use [Fatal]
  - Product use in unapproved indication [Fatal]
  - Psychomotor hyperactivity [Unknown]
  - Haematuria [Unknown]
  - Urine output decreased [Unknown]
  - Feeling of despair [Unknown]
  - Asthenia [Unknown]
  - Weight decreased [Unknown]
  - Anxiety [Unknown]
  - Dyspnoea [Unknown]
  - Pyrexia [Unknown]
  - Vomiting [Unknown]
  - Nausea [Recovering/Resolving]
  - Pain [Not Recovered/Not Resolved]
  - Decreased appetite [Unknown]
  - Death [Fatal]
  - Movement disorder [Recovering/Resolving]
  - Dizziness [Recovering/Resolving]

NARRATIVE: CASE EVENT DATE: 20220101
